FAERS Safety Report 7738638-6 (Version None)
Quarter: 2011Q3

REPORT INFORMATION
  Report Type: 
  Country: None (occurrence: None)
  Receive Date: 20110908
  Receipt Date: 20110830
  Transmission Date: 20111222
  Serious: Yes (Hospitalization)
  Sender: FDA-Public Use
  Company Number: US-ASTRAZENECA-2011SE52030

PATIENT
  Age: 56 Year
  Sex: Female
  Weight: 62.6 kg

DRUGS (17)
  1. OXYCODONE HCL [Concomitant]
     Indication: ANALGESIC THERAPY
     Dosage: 10 MG, FOUR TIMES A DAY
     Route: 048
     Dates: start: 20101001
  2. VITAMIN TAB [Concomitant]
     Dosage: DAILY
  3. FLAGYL [Concomitant]
     Indication: PROBIOTIC THERAPY
     Dosage: 500 MG, THREE TIMES A DAY
     Route: 048
     Dates: start: 20110711
  4. CRESTOR [Suspect]
     Indication: HYPERCHOLESTEROLAEMIA
     Route: 048
     Dates: start: 20030101, end: 20101101
  5. COUMADIN [Concomitant]
     Indication: COAGULATION FACTOR VIII LEVEL INCREASED
     Route: 048
     Dates: start: 19750101
  6. REQUIP [Concomitant]
     Indication: RESTLESS LEGS SYNDROME
     Dosage: 2 MG, TWO TIMES A DAY
     Route: 048
     Dates: start: 20050101
  7. PROZAC [Concomitant]
     Indication: DEPRESSION
     Route: 048
     Dates: start: 20020101
  8. WELLBUTRIN XL [Concomitant]
     Indication: ADJUVANT THERAPY
     Route: 048
     Dates: start: 20030101
  9. DAPTOMYCIN [Concomitant]
     Route: 042
     Dates: start: 20110301
  10. TOPAMAX [Concomitant]
     Dosage: 50 MG, TWO TIMES A DAY
     Route: 048
     Dates: start: 20070101
  11. LORPAD [Concomitant]
     Indication: ANALGESIC THERAPY
     Dosage: 10 MG, FOUR TIMES A DAY
     Route: 048
     Dates: start: 20080101
  12. XANAX [Concomitant]
     Indication: ANXIETY
     Dosage: 2 MG, TWO TIMES A DAY
     Route: 048
     Dates: start: 19750101
  13. TOPAMAX [Concomitant]
     Indication: MIGRAINE
     Dosage: 75 MG IN THE MORNING AND 100 MG AT NIGHT
     Route: 048
  14. SOMA [Concomitant]
     Indication: FIBROMYALGIA
     Dosage: 350 MG, FOUR TIMES A DAY
     Route: 048
     Dates: start: 20040101
  15. SIMVASTATIN [Concomitant]
     Indication: HYPERCHOLESTEROLAEMIA
     Route: 048
     Dates: start: 20101101
  16. SOMA [Concomitant]
     Indication: MULTIPLE SCLEROSIS
     Dosage: 350 MG, FOUR TIMES A DAY
     Route: 048
     Dates: start: 20040101
  17. COMBUNOX [Concomitant]
     Indication: PAIN
     Dosage: 5 MG, FOUR TIMES A DAY
     Route: 048
     Dates: start: 20040101

REACTIONS (3)
  - DRUG INEFFECTIVE [None]
  - BLOOD CHOLESTEROL INCREASED [None]
  - ANKLE FRACTURE [None]
